FAERS Safety Report 25660095 (Version 1)
Quarter: 2025Q3

REPORT INFORMATION
  Report Type: Spontaneous
  Country: US (occurrence: US)
  Receive Date: 20250808
  Receipt Date: 20250808
  Transmission Date: 20251020
  Serious: Yes (Other)
  Sender: PFIZER
  Company Number: US-PFIZER INC-PV202500095539

PATIENT
  Age: 73 Year
  Sex: Female

DRUGS (1)
  1. IBRANCE [Suspect]
     Active Substance: PALBOCICLIB
     Indication: Metastases to breast

REACTIONS (13)
  - Bell^s palsy [Unknown]
  - Muscular weakness [Unknown]
  - Gait disturbance [Unknown]
  - Movement disorder [Unknown]
  - Cough [Unknown]
  - Dysphagia [Unknown]
  - Dry eye [Unknown]
  - Essential hypertension [Unknown]
  - Constipation [Unknown]
  - Genital prolapse [Unknown]
  - Nausea [Unknown]
  - Vomiting [Unknown]
  - Pain [Unknown]

NARRATIVE: CASE EVENT DATE: 20250124
